FAERS Safety Report 13597852 (Version 1)
Quarter: 2017Q2

REPORT INFORMATION
  Report Type: Report from Study
  Country: None (occurrence: CA)
  Receive Date: 20170531
  Receipt Date: 20170531
  Transmission Date: 20170830
  Serious: Yes (Other)
  Sender: FDA-Public Use
  Company Number: CA-ABBVIE-13P-028-1089457-00

PATIENT
  Sex: Female

DRUGS (1)
  1. HUMIRA [Suspect]
     Active Substance: ADALIMUMAB
     Indication: PSORIASIS
     Route: 058
     Dates: start: 20121221

REACTIONS (6)
  - Drug effect incomplete [Not Recovered/Not Resolved]
  - Hypertension [Recovered/Resolved]
  - Monoplegia [Not Recovered/Not Resolved]
  - Post procedural complication [Not Recovered/Not Resolved]
  - Blood glucose increased [Recovered/Resolved]
  - Psoriatic arthropathy [Not Recovered/Not Resolved]
